FAERS Safety Report 15248191 (Version 1)
Quarter: 2018Q3

REPORT INFORMATION
  Report Type: Spontaneous
  Country: US (occurrence: US)
  Receive Date: 20180807
  Receipt Date: 20180807
  Transmission Date: 20181010
  Serious: No
  Sender: FDA-Public Use
  Company Number: US-BAYER-2018-143423

PATIENT
  Age: 87 Year
  Sex: Female

DRUGS (1)
  1. MIRALAX [Suspect]
     Active Substance: POLYETHYLENE GLYCOL 3350
     Dosage: FULL CAP IN 4?8 OUNCES OF BEVERAGE
     Route: 048

REACTIONS (4)
  - Rectal discharge [Unknown]
  - Anal haemorrhage [Unknown]
  - Anorectal discomfort [Unknown]
  - Product use issue [None]
